FAERS Safety Report 19566501 (Version 2)
Quarter: 2021Q4

REPORT INFORMATION
  Report Type: Spontaneous
  Country: CA (occurrence: CA)
  Receive Date: 20210716
  Receipt Date: 20211208
  Transmission Date: 20220303
  Serious: Yes (Other)
  Sender: FDA-Public Use
  Company Number: CA-VALIDUS PHARMACEUTICALS LLC-CA-VDP-2021-000046

PATIENT

DRUGS (6)
  1. MEPERIDINE HYDROCHLORIDE [Suspect]
     Active Substance: MEPERIDINE HYDROCHLORIDE
     Indication: Pain
     Dosage: 100 MILLIGRAM
     Route: 030
  2. HEPARIN SODIUM [Suspect]
     Active Substance: HEPARIN SODIUM
     Indication: Premature separation of placenta
     Dosage: 1100 INTERNATIONAL UNIT
     Route: 042
  3. HEPARIN SODIUM [Suspect]
     Active Substance: HEPARIN SODIUM
     Indication: Disseminated intravascular coagulation
     Dosage: 5000 INTERNATIONAL UNIT (SOLUTION INTRAVENOUS)
     Route: 042
  4. HYDRALAZINE [Suspect]
     Active Substance: HYDRALAZINE HYDROCHLORIDE
     Indication: Hypertension
     Route: 041
  5. PHENOXYBENZAMINE [Suspect]
     Active Substance: PHENOXYBENZAMINE
     Indication: Labour induction
     Route: 065
  6. OXYTOCIN [Concomitant]
     Active Substance: OXYTOCIN
     Route: 065

REACTIONS (2)
  - Stillbirth [Unknown]
  - Product use issue [Unknown]
